FAERS Safety Report 17621129 (Version 1)
Quarter: 2020Q2

REPORT INFORMATION
  Report Type: Spontaneous
  Country: JP (occurrence: JP)
  Receive Date: 20200403
  Receipt Date: 20200403
  Transmission Date: 20200713
  Serious: Yes (Other)
  Sender: FDA-Public Use
  Company Number: JP-TEVA-2020-JP-002581J

PATIENT
  Sex: Male

DRUGS (2)
  1. CERCINE [Suspect]
     Active Substance: DIAZEPAM
     Route: 065
     Dates: end: 201712
  2. CERCINE [Suspect]
     Active Substance: DIAZEPAM
     Indication: PRODUCT USED FOR UNKNOWN INDICATION
     Route: 048
     Dates: end: 20140905

REACTIONS (7)
  - Weight decreased [Recovering/Resolving]
  - Loose tooth [Recovering/Resolving]
  - Parkinson^s disease [Unknown]
  - Dizziness [Unknown]
  - Physical deconditioning [Unknown]
  - Oral mucosa erosion [Recovering/Resolving]
  - Insomnia [Unknown]
